FAERS Safety Report 4491449-X (Version None)
Quarter: 2004Q3

REPORT INFORMATION
  Report Type: 
  Country: None (occurrence: None)
  Receive Date: 20040921
  Receipt Date: 20011009
  Transmission Date: 20050211
  Serious: Yes (Hospitalization)
  Sender: FDA-Public Use
  Company Number: 163-20785-03010147

PATIENT
  Age: 40 Year
  Sex: Male

DRUGS (4)
  1. THALOMID [Suspect]
     Indication: MULTIPLE MYELOMA
     Dosage: ORAL
     Route: 048
     Dates: start: 19980911, end: 20000517
  2. THALOMID [Suspect]
     Indication: MULTIPLE MYELOMA
     Dosage: ORAL
     Route: 048
     Dates: start: 20010914, end: 20010917
  3. IMID (CAPSULES) [Suspect]
     Indication: MULTIPLE MYELOMA
     Dosage: 25 MG, QD, ORAL
     Route: 048
     Dates: start: 20010715, end: 20010905
  4. DECADRON [Suspect]
     Indication: MULTIPLE MYELOMA
     Dosage: 20 MG, Q2WEEKS, ORAL
     Route: 048
     Dates: start: 20010715, end: 20010905

REACTIONS (4)
  - COUGH [None]
  - DYSPNOEA [None]
  - PNEUMONITIS [None]
  - RESPIRATORY FAILURE [None]
